FAERS Safety Report 16823990 (Version 2)
Quarter: 2019Q3

REPORT INFORMATION
  Report Type: Spontaneous
  Country: CA (occurrence: CA)
  Receive Date: 20190918
  Receipt Date: 20190930
  Transmission Date: 20191005
  Serious: Yes (Other)
  Sender: FDA-Public Use
  Company Number: CA-PFIZER INC-2019394964

PATIENT
  Age: 36 Year
  Sex: Male

DRUGS (9)
  1. APO-CYCLOSPORINE [Suspect]
     Active Substance: CYCLOSPORINE
     Indication: IMMUNOSUPPRESSANT DRUG THERAPY
     Dosage: 300 MG, UNK
     Route: 048
  2. CYCLOPHOSPHAMIDE. [Suspect]
     Active Substance: CYCLOPHOSPHAMIDE
     Indication: THROMBOTIC THROMBOCYTOPENIC PURPURA
     Dosage: 1250 MG, UNK
     Route: 042
  3. RITUXIMAB. [Suspect]
     Active Substance: RITUXIMAB
     Dosage: 375 MG/M2, 2X/WEEK
  4. ACT BORTEZOMIB [Suspect]
     Active Substance: BORTEZOMIB
     Indication: THROMBOTIC THROMBOCYTOPENIC PURPURA
     Dosage: 1.3 MG/M2, CYCLIC
  5. ACT BORTEZOMIB [Suspect]
     Active Substance: BORTEZOMIB
     Dosage: 3.1 MG, CYCLIC
     Route: 042
  6. METHYLPREDNISOLONE. [Suspect]
     Active Substance: METHYLPREDNISOLONE
     Indication: THROMBOTIC THROMBOCYTOPENIC PURPURA
     Dosage: 100 MG, UNK
  7. RITUXIMAB. [Suspect]
     Active Substance: RITUXIMAB
     Indication: THROMBOTIC THROMBOCYTOPENIC PURPURA
     Dosage: 375 MG/M2, UNK
  8. CYCLOPHOSPHAMIDE. [Suspect]
     Active Substance: CYCLOPHOSPHAMIDE
     Dosage: 750 MG, UNK
     Route: 042
  9. ACT BORTEZOMIB [Suspect]
     Active Substance: BORTEZOMIB
     Dosage: UNK

REACTIONS (11)
  - Hemianopia [Unknown]
  - Device related sepsis [Unknown]
  - Therapy non-responder [Unknown]
  - Brain oedema [Unknown]
  - Cerebral infarction [Unknown]
  - Abdominal abscess [Unknown]
  - Empyema [Unknown]
  - Enterococcal infection [Unknown]
  - Staphylococcal infection [Unknown]
  - Candida infection [Unknown]
  - Pneumonia klebsiella [Unknown]
